FAERS Safety Report 5080809-4 (Version None)
Quarter: 2006Q3

REPORT INFORMATION
  Report Type: 
  Country: None (occurrence: None)
  Receive Date: 20060815
  Receipt Date: 20051103
  Transmission Date: 20061208
  Serious: Yes (Hospitalization)
  Sender: FDA-Public Use
  Company Number: US-BRISTOL-MYERS SQUIBB COMPANY-13167655

PATIENT
  Age: 60 Year
  Sex: Female

DRUGS (5)
  1. ERBITUX [Suspect]
     Indication: COLORECTAL CANCER METASTATIC
     Dosage: STARTED ON WEEKLY DOSE ON 28-APR-2005. DISCONTINUED DUE TO DISEASE PROGRESSION.
     Route: 042
     Dates: start: 20050901, end: 20050901
  2. COLACE [Concomitant]
     Route: 048
     Dates: start: 20050519
  3. HYDROCHLOROTHIAZIDE [Concomitant]
     Indication: HYPERTENSION
     Route: 048
     Dates: start: 20050804, end: 20050920
  4. POTASSIUM [Concomitant]
     Indication: MEDICAL DIET
     Route: 048
     Dates: start: 20050804
  5. ROXICET [Concomitant]
     Indication: PAIN
     Route: 048
     Dates: start: 20050714

REACTIONS (3)
  - ANAEMIA [None]
  - RENAL FAILURE ACUTE [None]
  - URETERIC OBSTRUCTION [None]
